FAERS Safety Report 25088123 (Version 1)
Quarter: 2025Q1

REPORT INFORMATION
  Report Type: Spontaneous
  Country: US (occurrence: US)
  Receive Date: 20250318
  Receipt Date: 20250318
  Transmission Date: 20250409
  Serious: Yes (Hospitalization)
  Sender: CHIESI
  Company Number: US-CHIESI-2025CHF01677

PATIENT
  Sex: Male

DRUGS (1)
  1. METRELEPTIN [Suspect]
     Active Substance: METRELEPTIN
     Indication: Congenital generalised lipodystrophy
     Route: 058
     Dates: start: 20221104, end: 20241217

REACTIONS (1)
  - Osteomyelitis [Unknown]
